FAERS Safety Report 22600583 (Version 1)
Quarter: 2023Q2

REPORT INFORMATION
  Report Type: Spontaneous
  Country: AT (occurrence: AT)
  Receive Date: 20230614
  Receipt Date: 20230614
  Transmission Date: 20230721
  Serious: Yes (Death, Other)
  Sender: FDA-Public Use
  Company Number: AT-EXELIXIS-CABO-23064774

PATIENT
  Age: 55 Year
  Sex: Male

DRUGS (2)
  1. CABOMETYX [Suspect]
     Active Substance: CABOZANTINIB S-MALATE
     Indication: Renal cell carcinoma
     Dosage: 40 MG, QD
     Route: 065
     Dates: start: 202112
  2. NIVOLUMAB [Suspect]
     Active Substance: NIVOLUMAB
     Indication: Renal cell carcinoma
     Dosage: 240 MG, Q2WEEKS
     Route: 065
     Dates: start: 202112

REACTIONS (5)
  - Monoplegia [Unknown]
  - Disease progression [Unknown]
  - Death [Fatal]
  - Stent placement [Unknown]
  - Nausea [Unknown]

NARRATIVE: CASE EVENT DATE: 20220501
